FAERS Safety Report 21656310 (Version 1)
Quarter: 2022Q4

REPORT INFORMATION
  Report Type: Report from Study
  Country: AT (occurrence: AT)
  Receive Date: 20221129
  Receipt Date: 20221129
  Transmission Date: 20230112
  Serious: Yes (Hospitalization)
  Sender: FDA-Public Use
  Company Number: None

PATIENT
  Sex: Female
  Weight: 89 kg

DRUGS (39)
  1. ANASTROZOLE [Suspect]
     Active Substance: ANASTROZOLE
     Indication: Breast cancer metastatic
     Dosage: MOST RECENT DOSE PRIOR TO AE 14/ MAY/ 2018
     Route: 048
     Dates: start: 20170324
  2. DOCETAXEL [Suspect]
     Active Substance: DOCETAXEL
     Indication: Breast cancer metastatic
     Route: 042
     Dates: start: 20181017, end: 20181017
  3. FULVESTRANT [Suspect]
     Active Substance: FULVESTRANT
     Indication: Breast cancer metastatic
     Dosage: MOST RECENT DOSE PRIOR TO THE EVENT: 26/ DEC/2018
     Route: 030
     Dates: start: 20181128, end: 20181226
  4. TRASTUZUMAB [Suspect]
     Active Substance: TRASTUZUMAB
     Indication: Breast cancer metastatic
     Route: 042
     Dates: start: 20180926, end: 20180926
  5. PERTUZUMAB [Suspect]
     Active Substance: PERTUZUMAB
     Indication: Breast cancer metastatic
     Dosage: MOST RECENT DOSE PRIOR TO THE EVENT: 14/ JUL/2017,13/DEC/2017,23/JUL/2018
     Route: 042
     Dates: start: 20170324, end: 20170324
  6. ASPIRIN [Concomitant]
     Active Substance: ASPIRIN
     Indication: Hypertension
     Dates: start: 20171120, end: 20190615
  7. DEXABENE [Concomitant]
     Dates: start: 20181107
  8. METHYLPREDNISOLONE [Concomitant]
     Active Substance: METHYLPREDNISOLONE
     Dates: start: 20191210
  9. PANTOPRAZOLE SODIUM [Concomitant]
     Active Substance: PANTOPRAZOLE SODIUM
     Dosage: ONGOING - CHECKED
  10. DEXAMETHASONE [Concomitant]
     Active Substance: DEXAMETHASONE
     Dosage: ONGOING - NOT CHECKED
     Dates: start: 20180723, end: 20181017
  11. CORTISONE ACETATE [Concomitant]
     Active Substance: CORTISONE ACETATE
     Dosage: ONGOING-NOT CHECKED
     Dates: start: 20180608, end: 20180608
  12. VIBRAMYCIN [Concomitant]
     Active Substance: DOXYCYCLINE
     Indication: Sinusitis
     Dosage: ONGOING - NOT CHECKED
     Dates: start: 20180417, end: 20180615
  13. HYDROCHLOROTHIAZIDE\RAMIPRIL [Concomitant]
     Active Substance: HYDROCHLOROTHIAZIDE\RAMIPRIL
     Dosage: ONGOING - CHECKED
     Dates: start: 20210129
  14. KYTRIL [Concomitant]
     Active Substance: GRANISETRON HYDROCHLORIDE
     Dosage: ONGOING - CHECKED
     Dates: start: 20180608, end: 20181017
  15. CALCIUM CARBONATE\CHOLECALCIFEROL [Concomitant]
     Active Substance: CALCIUM CARBONATE\CHOLECALCIFEROL
     Dates: start: 20170505, end: 20190615
  16. DIMETHINDENE [Concomitant]
     Active Substance: DIMETHINDENE
     Dosage: ONGOING - CHECKED
     Dates: start: 20170414
  17. RANITIDINE HYDROCHLORIDE [Concomitant]
     Active Substance: RANITIDINE HYDROCHLORIDE
     Dates: start: 20170414, end: 20191119
  18. XGEVA [Concomitant]
     Active Substance: DENOSUMAB
     Dates: start: 20170505, end: 20180329
  19. FERRIC CARBOXYMALTOSE [Concomitant]
     Active Substance: FERRIC CARBOXYMALTOSE
     Dosage: ONGOING IS EQUAL TO NOT CHECKED
     Dates: start: 20220218, end: 20220218
  20. FULVESTRANT [Suspect]
     Active Substance: FULVESTRANT
     Indication: Breast cancer metastatic
     Dosage: ONGOING
     Dates: start: 20181226
  21. PERTUZUMAB [Suspect]
     Active Substance: PERTUZUMAB
     Indication: Breast cancer metastatic
     Dosage: 420 MG, WEEKLY
     Dates: start: 20170714, end: 20171030
  22. DOCETAXEL [Suspect]
     Active Substance: DOCETAXEL
     Indication: Breast cancer metastatic
     Dosage: 134.32 MG, EVERY 3 WEEKS
     Dates: start: 20180723, end: 20180904
  23. DOCETAXEL [Suspect]
     Active Substance: DOCETAXEL
     Indication: Breast cancer metastatic
     Dosage: 132.78 MG, EVERY 3 WEEKS
     Dates: start: 20180926, end: 20180926
  24. TRASTUZUMAB [Suspect]
     Active Substance: TRASTUZUMAB
     Indication: Breast cancer metastatic
     Dosage: ON 24/APR/2020, MOST RECENT DOSE
     Route: 041
     Dates: start: 20181219
  25. TRASTUZUMAB [Suspect]
     Active Substance: TRASTUZUMAB
     Indication: Breast cancer metastatic
     Dates: start: 20181017, end: 20181017
  26. TRASTUZUMAB [Suspect]
     Active Substance: TRASTUZUMAB
     Indication: Breast cancer metastatic
     Dates: start: 20181128, end: 20181128
  27. TRASTUZUMAB [Suspect]
     Active Substance: TRASTUZUMAB
     Indication: Breast cancer metastatic
     Dosage: ON 24/APR/2020, MOST RECENT DOSE/ 408 MG, EVERY 3 WEEKS, INFUSION, SOLUTION
     Dates: start: 20181219
  28. XGEVA [Concomitant]
     Active Substance: DENOSUMAB
     Dates: start: 20181017
  29. TRASTUZUMAB [Suspect]
     Active Substance: TRASTUZUMAB
     Indication: Breast cancer metastatic
     Dosage: 474 MG, EVERY 3 WEEKS
     Dates: start: 20171213, end: 20180514
  30. TRASTUZUMAB [Suspect]
     Active Substance: TRASTUZUMAB
     Indication: Breast cancer metastatic
     Dosage: 480 MG, EVERY 3 WEEKS
     Dates: start: 20170828, end: 20171030
  31. TRASTUZUMAB [Suspect]
     Active Substance: TRASTUZUMAB
     Indication: Breast cancer metastatic
     Dosage: 534 MG, EVERY 3 WEEKS
     Dates: start: 20170714, end: 20170804
  32. TRASTUZUMAB [Suspect]
     Active Substance: TRASTUZUMAB
     Indication: Breast cancer metastatic
     Dates: start: 20180723, end: 20180904
  33. TRASTUZUMAB [Suspect]
     Active Substance: TRASTUZUMAB
     Indication: Breast cancer metastatic
     Dosage: 462 MG, EVERY 3 WEEKS
     Dates: start: 20180608, end: 20180608
  34. TRASTUZUMAB [Suspect]
     Active Substance: TRASTUZUMAB
     Indication: Breast cancer metastatic
     Dosage: 534 MG, EVERY 3 WEEKS
     Dates: start: 20170414, end: 20170619
  35. TRASTUZUMAB [Suspect]
     Active Substance: TRASTUZUMAB
     Indication: Breast cancer metastatic
     Dosage: 408 MG, EVERY 3 WEEKS (ON 24/APR/2020, MOST RECENT DOSE )
     Dates: start: 20210424
  36. TRASTUZUMAB [Suspect]
     Active Substance: TRASTUZUMAB
     Indication: Breast cancer metastatic
     Dosage: 450 MG, EVERY 3 WEEKS
     Dates: start: 20200515
  37. TRASTUZUMAB [Suspect]
     Active Substance: TRASTUZUMAB
     Indication: Breast cancer metastatic
     Dosage: MOST RECENT DOSE PRIOR TO THE EVENT: 14/JUL/2017, 08/JUN/2018, 23/JUL/2018, 08/JUN/2018
     Route: 042
     Dates: start: 20170324, end: 20170324
  38. PERTUZUMAB [Suspect]
     Active Substance: PERTUZUMAB
     Indication: Breast cancer metastatic
     Route: 042
     Dates: start: 20180723
  39. DOCETAXEL [Suspect]
     Active Substance: DOCETAXEL
     Indication: Breast cancer metastatic
     Dosage: DATE OF MOST RECENT DOSE: 23/JUL/2018
     Route: 042
     Dates: start: 20180608, end: 20180608

REACTIONS (14)
  - Sinusitis [Recovered/Resolved]
  - Dyspnoea [Not Recovered/Not Resolved]
  - Hypertension [Recovered/Resolved]
  - Pyrexia [Not Recovered/Not Resolved]
  - Paraesthesia [Recovered/Resolved]
  - Dysgeusia [Recovered/Resolved]
  - Dyspnoea exertional [Recovered/Resolved]
  - Renal pain [Recovered/Resolved]
  - Ejection fraction decreased [Recovering/Resolving]
  - Flank pain [Recovered/Resolved]
  - Diarrhoea [Recovered/Resolved]
  - Polyneuropathy [Unknown]
  - Fatigue [Recovered/Resolved]
  - Pain in jaw [Recovered/Resolved]

NARRATIVE: CASE EVENT DATE: 20171030
